FAERS Safety Report 14092854 (Version 1)
Quarter: 2017Q4

REPORT INFORMATION
  Report Type: Spontaneous
  Country: US (occurrence: US)
  Receive Date: 20171016
  Receipt Date: 20171016
  Transmission Date: 20180321
  Serious: Yes (Hospitalization)
  Sender: FDA-Public Use
  Company Number: US-BAYER-2017-136005

PATIENT
  Age: 50 Year
  Sex: Male

DRUGS (2)
  1. ACETYLSALICYLIC ACID({=100 MG) [Suspect]
     Active Substance: ASPIRIN
     Indication: PRODUCT USED FOR UNKNOWN INDICATION
     Dosage: UNK
     Route: 048
  2. XARELTO [Suspect]
     Active Substance: RIVAROXABAN
     Indication: CARDIAC VENTRICULAR THROMBOSIS
     Dosage: 20 MG, UNK
     Route: 048
     Dates: start: 20151010, end: 20160405

REACTIONS (3)
  - Upper gastrointestinal haemorrhage [Recovering/Resolving]
  - Product use in unapproved indication [Unknown]
  - Off label use [Unknown]

NARRATIVE: CASE EVENT DATE: 20151010
